FAERS Safety Report 17034539 (Version 2)
Quarter: 2019Q4

REPORT INFORMATION
  Report Type: Report from Study
  Country: PH (occurrence: PH)
  Receive Date: 20191115
  Receipt Date: 20191202
  Transmission Date: 20200122
  Serious: Yes (Hospitalization)
  Sender: FDA-Public Use
  Company Number: NVSC2019PH012943

PATIENT
  Age: 36 Year
  Sex: Male
  Weight: 68 kg

DRUGS (5)
  1. ERYTHROPOIETIN [Concomitant]
     Active Substance: ERYTHROPOIETIN
     Indication: ANAEMIA OF CHRONIC DISEASE
     Dosage: UNK
     Route: 065
     Dates: start: 20180101
  2. ADALIMUMAB [Suspect]
     Active Substance: ADALIMUMAB
     Indication: ANKYLOSING SPONDYLITIS
     Dosage: 1 DF, Q2W
     Route: 058
     Dates: start: 20181129, end: 20191017
  3. SULFASALAZINE. [Concomitant]
     Active Substance: SULFASALAZINE
     Indication: ANKYLOSING SPONDYLITIS
     Dosage: UNK
     Route: 065
     Dates: start: 20180201
  4. ARCOXIA [Concomitant]
     Active Substance: ETORICOXIB
     Indication: ANKYLOSING SPONDYLITIS
     Dosage: UNK
     Route: 065
     Dates: start: 20171101
  5. DOLCET [Concomitant]
     Active Substance: ACETAMINOPHEN\TRAMADOL HYDROCHLORIDE
     Indication: ANKYLOSING SPONDYLITIS
     Dosage: UNK
     Route: 065
     Dates: start: 20171101

REACTIONS (2)
  - Pneumonia [Not Recovered/Not Resolved]
  - Pneumonia [Recovered/Resolved]

NARRATIVE: CASE EVENT DATE: 20190813
